FAERS Safety Report 14230844 (Version 1)
Quarter: 2017Q4

REPORT INFORMATION
  Report Type: Spontaneous
  Country: US (occurrence: US)
  Receive Date: 20171128
  Receipt Date: 20171128
  Transmission Date: 20180321
  Serious: No
  Sender: FDA-Public Use
  Company Number: US-JNJFOC-20171028515

PATIENT
  Age: 13 Year
  Sex: Female
  Weight: 58.97 kg

DRUGS (4)
  1. CHILDRENS ZYRTEC [Suspect]
     Active Substance: CETIRIZINE HYDROCHLORIDE
     Indication: SEASONAL ALLERGY
     Dosage: BEFORE BED; MORNING TIME
     Route: 065
     Dates: end: 20171023
  2. CHILDRENS ZYRTEC [Suspect]
     Active Substance: CETIRIZINE HYDROCHLORIDE
     Indication: SEASONAL ALLERGY
     Dosage: MORNING TIME AND AROUND 4 OR 5 PM
     Route: 065
  3. CHILDRENS ZYRTEC [Suspect]
     Active Substance: CETIRIZINE HYDROCHLORIDE
     Indication: MIGRAINE
     Dosage: BEFORE BED; MORNING TIME
     Route: 065
     Dates: end: 20171023
  4. CHILDRENS ZYRTEC [Suspect]
     Active Substance: CETIRIZINE HYDROCHLORIDE
     Indication: MIGRAINE
     Dosage: MORNING TIME AND AROUND 4 OR 5 PM
     Route: 065

REACTIONS (5)
  - Therapeutic response unexpected [Unknown]
  - Poor quality sleep [Recovered/Resolved]
  - Product use in unapproved indication [Unknown]
  - Somnolence [Not Recovered/Not Resolved]
  - Drug ineffective for unapproved indication [Unknown]
